FAERS Safety Report 14561600 (Version 1)
Quarter: 2018Q1

REPORT INFORMATION
  Report Type: Report from Study
  Country: AU (occurrence: AU)
  Receive Date: 20180222
  Receipt Date: 20180222
  Transmission Date: 20180509
  Serious: Yes (Death, Other)
  Sender: FDA-Public Use
  Company Number: AU-AMGEN-AUSSL2018024241

PATIENT
  Sex: Female

DRUGS (1)
  1. ARANESP [Suspect]
     Active Substance: DARBEPOETIN ALFA
     Indication: NEPHROGENIC ANAEMIA
     Dosage: UNK, UNK
     Route: 065
     Dates: start: 201410, end: 201802

REACTIONS (1)
  - Death [Fatal]

NARRATIVE: CASE EVENT DATE: 201802
